FAERS Safety Report 10891734 (Version 1)
Quarter: 2015Q1

REPORT INFORMATION
  Report Type: Report from Study
  Country: US (occurrence: US)
  Receive Date: 20150306
  Receipt Date: 20150306
  Transmission Date: 20150721
  Serious: Yes (Other)
  Sender: FDA-Public Use
  Company Number: US-JNJFOC-20150216380

PATIENT
  Age: 30 Year
  Sex: Female
  Weight: 86.18 kg

DRUGS (3)
  1. INVOKANA [Suspect]
     Active Substance: CANAGLIFLOZIN
     Indication: TYPE 2 DIABETES MELLITUS
     Route: 048
     Dates: start: 201412, end: 20150205
  2. INVOKANA [Suspect]
     Active Substance: CANAGLIFLOZIN
     Route: 048
  3. LEVOTHYROXINE [Concomitant]
     Active Substance: LEVOTHYROXINE
     Indication: HYPERTHYROIDISM
     Route: 065

REACTIONS (1)
  - Fungal infection [Recovering/Resolving]

NARRATIVE: CASE EVENT DATE: 201501
